FAERS Safety Report 6955883-8 (Version None)
Quarter: 2010Q3

REPORT INFORMATION
  Report Type: 
  Country: None (occurrence: None)
  Receive Date: 20100826
  Receipt Date: 20100826
  Transmission Date: 20110219
  Serious: Yes (Life-Threatening)
  Sender: FDA-Public Use
  Company Number: None

PATIENT
  Age: 55 Year
  Sex: Female
  Weight: 81.6475 kg

DRUGS (1)
  1. ADVAIR DISKUS 250/50 [Suspect]
     Indication: ASTHMA
     Dosage: ONE INHALATION BID PO
     Route: 048

REACTIONS (5)
  - ADRENAL INSUFFICIENCY [None]
  - HYPERSOMNIA [None]
  - IMPAIRED WORK ABILITY [None]
  - UNEMPLOYMENT [None]
  - WEIGHT DECREASED [None]
